FAERS Safety Report 6713047-7 (Version None)
Quarter: 2010Q2

REPORT INFORMATION
  Report Type: 
  Country: None (occurrence: None)
  Receive Date: 20100506
  Receipt Date: 20100429
  Transmission Date: 20101027
  Serious: Yes (Hospitalization)
  Sender: FDA-Public Use
  Company Number: US-RB-007726-10

PATIENT
  Sex: Female

DRUGS (3)
  1. SUBOXONE [Suspect]
     Route: 060
     Dates: start: 20091001, end: 20100101
  2. SUBOXONE [Suspect]
     Route: 060
     Dates: start: 20100101
  3. ADDERALL 30 [Concomitant]
     Indication: ATTENTION DEFICIT/HYPERACTIVITY DISORDER
     Dosage: DOSING DETAILS UNKNOWN
     Route: 065

REACTIONS (4)
  - BACK PAIN [None]
  - CONCUSSION [None]
  - NASOPHARYNGITIS [None]
  - SKIN LACERATION [None]
